FAERS Safety Report 24800351 (Version 1)
Quarter: 2025Q1

REPORT INFORMATION
  Report Type: Spontaneous
  Country: US (occurrence: None)
  Receive Date: 20250101
  Receipt Date: 20250101
  Transmission Date: 20250409
  Serious: Yes (unspecified)
  Sender: FDA-CTU
  Company Number: None

PATIENT
  Age: 25 Year
  Sex: Female
  Weight: 78.75 kg

DRUGS (1)
  1. VICTOZA [Suspect]
     Active Substance: LIRAGLUTIDE
     Indication: Glycosylated haemoglobin increased
     Dates: start: 20230816, end: 20240423

REACTIONS (5)
  - Abdominal pain upper [None]
  - Eructation [None]
  - Dysgeusia [None]
  - Hypophagia [None]
  - Gastrointestinal disorder [None]

NARRATIVE: CASE EVENT DATE: 20231109
